FAERS Safety Report 15518788 (Version 1)
Quarter: 2018Q4

REPORT INFORMATION
  Report Type: Report from Study
  Country: US (occurrence: US)
  Receive Date: 20181017
  Receipt Date: 20181017
  Transmission Date: 20190205
  Serious: No
  Sender: FDA-Public Use
  Company Number: PHEH2018US043259

PATIENT
  Sex: Female

DRUGS (1)
  1. GILENYA [Suspect]
     Active Substance: FINGOLIMOD HYDROCHLORIDE
     Indication: RELAPSING-REMITTING MULTIPLE SCLEROSIS
     Dosage: UNK UNK, BID
     Route: 048
     Dates: start: 201801

REACTIONS (11)
  - Balance disorder [Unknown]
  - Emotional distress [Unknown]
  - Asthenia [Unknown]
  - Oral herpes [Unknown]
  - Fatigue [Unknown]
  - Blood pressure abnormal [Unknown]
  - Visual impairment [Unknown]
  - Mobility decreased [Recovering/Resolving]
  - Hypersensitivity [Unknown]
  - Cognitive disorder [Unknown]
  - Muscular weakness [Unknown]
